FAERS Safety Report 9648775 (Version 3)
Quarter: 2013Q4

REPORT INFORMATION
  Report Type: Spontaneous
  Country: DE (occurrence: DE)
  Receive Date: 20131028
  Receipt Date: 20131119
  Transmission Date: 20140711
  Serious: Yes (Hospitalization, Other)
  Sender: FDA-Public Use
  Company Number: PHHY2013DE121162

PATIENT
  Age: 49 Year
  Sex: Female

DRUGS (4)
  1. GILENYA [Suspect]
     Indication: RELAPSING-REMITTING MULTIPLE SCLEROSIS
     Dosage: 0.5 MG, QD
     Route: 048
     Dates: start: 2011, end: 201310
  2. L-THYROX [Concomitant]
     Indication: SUPPLEMENTATION THERAPY
     Dosage: 75 UG, QD
     Route: 048
  3. TEGRETAL [Concomitant]
     Indication: SIMPLE PARTIAL SEIZURES
     Dosage: 200 MG, BID
     Route: 048
  4. ANTIHYPERTENSIVE DRUGS [Concomitant]
     Indication: HYPERTENSION

REACTIONS (7)
  - Ischaemic stroke [Recovering/Resolving]
  - Dysarthria [Unknown]
  - Motor dysfunction [Unknown]
  - Insomnia [Unknown]
  - Aphasia [Unknown]
  - Gait disturbance [Unknown]
  - Fall [Unknown]
